FAERS Safety Report 4706144-9 (Version None)
Quarter: 2005Q2

REPORT INFORMATION
  Report Type: 
  Country: None (occurrence: None)
  Receive Date: 20050627
  Receipt Date: 20041214
  Transmission Date: 20051028
  Serious: Yes (Hospitalization)
  Sender: FDA-Public Use
  Company Number: 04-000886

PATIENT
  Age: 52 Year
  Sex: Female
  Weight: 49.9 kg

DRUGS (1)
  1. LOESTRIN 1.5/30 [Suspect]
     Indication: CONTRACEPTION
     Dosage: 20/1000 UG, QD, ORAL
     Route: 048
     Dates: start: 19700101, end: 20010101

REACTIONS (1)
  - CHOLELITHIASIS [None]
